FAERS Safety Report 5862359-8 (Version None)
Quarter: 2008Q3

REPORT INFORMATION
  Report Type: 
  Country: None (occurrence: None)
  Receive Date: 20080826
  Receipt Date: 20080815
  Transmission Date: 20090109
  Serious: Yes (Hospitalization)
  Sender: FDA-Public Use
  Company Number: 2008AP002052

PATIENT
  Age: 23 Year
  Sex: Male

DRUGS (4)
  1. CARBAMAZEPINE [Suspect]
     Indication: FRONTAL LOBE EPILEPSY
     Dosage: 600 MG; BID
  2. CLARITHROMYCIN [Suspect]
     Indication: BRONCHITIS
     Dosage: 500 MG;BID
  3. VALPROIC ACID [Concomitant]
  4. CLOBAZAM (CLOBAZAM) [Concomitant]

REACTIONS (5)
  - ATAXIA [None]
  - BRONCHITIS [None]
  - DIPLOPIA [None]
  - GAIT DISTURBANCE [None]
  - INHIBITORY DRUG INTERACTION [None]
